FAERS Safety Report 5302009-2 (Version None)
Quarter: 2007Q2

REPORT INFORMATION
  Report Type: 
  Country: None (occurrence: None)
  Receive Date: 20070416
  Receipt Date: 20070416
  Transmission Date: 20071010
  Serious: Yes (Other)
  Sender: FDA-Public Use
  Company Number: None

PATIENT
  Age: 26 Year
  Sex: Female
  Weight: 65.7716 kg

DRUGS (2)
  1. DIHYDROERGOTAMINE MESYLATE [Suspect]
     Indication: MIGRAINE
     Dosage: OVER AN HOUR    IV
     Route: 042
     Dates: start: 20060901, end: 20060901
  2. PHENERGAN HCL [Suspect]
     Dosage: OVER AN HOUR  IV
     Route: 042

REACTIONS (4)
  - AGITATION [None]
  - CHEST DISCOMFORT [None]
  - DYSKINESIA [None]
  - THROMBOPHLEBITIS SUPERFICIAL [None]
